FAERS Safety Report 6910567-7 (Version None)
Quarter: 2010Q3

REPORT INFORMATION
  Report Type: 
  Country: None (occurrence: None)
  Receive Date: 20100806
  Receipt Date: 20100729
  Transmission Date: 20110219
  Serious: Yes (Other)
  Sender: FDA-Public Use
  Company Number: US-PFIZER INC-2010095805

PATIENT

DRUGS (2)
  1. LIPITOR [Suspect]
     Dosage: 20MG, UNK
  2. NEXIUM [Suspect]
     Dosage: UNK

REACTIONS (2)
  - DYSPNOEA [None]
  - DYSTONIA [None]
